FAERS Safety Report 19270877 (Version 1)
Quarter: 2021Q2

REPORT INFORMATION
  Report Type: Report from Study
  Country: CA (occurrence: CA)
  Receive Date: 20210518
  Receipt Date: 20210518
  Transmission Date: 20210717
  Serious: Yes (Other)
  Sender: FDA-Public Use
  Company Number: CA-JNJFOC-20210424167

PATIENT
  Age: 37 Year
  Sex: Female
  Weight: 72.3 kg

DRUGS (1)
  1. REMICADE [Suspect]
     Active Substance: INFLIXIMAB
     Indication: CROHN^S DISEASE
     Dosage: ON 16?MAR?2021, PATIENT RECEIVED HIS LAST INFUSION
     Route: 042

REACTIONS (4)
  - Malaise [Unknown]
  - Crohn^s disease [Recovering/Resolving]
  - Tachycardia [Recovering/Resolving]
  - COVID-19 [Unknown]

NARRATIVE: CASE EVENT DATE: 202104
